FAERS Safety Report 17792456 (Version 1)
Quarter: 2020Q2

REPORT INFORMATION
  Report Type: Spontaneous
  Country: US (occurrence: US)
  Receive Date: 20200515
  Receipt Date: 20200515
  Transmission Date: 20200714
  Serious: Yes (Hospitalization)
  Sender: FDA-Public Use
  Company Number: US-MYLANLABS-2020M1048860

PATIENT
  Age: 28 Year
  Sex: Male

DRUGS (14)
  1. FENOFIBRATE. [Suspect]
     Active Substance: FENOFIBRATE
     Indication: PANCREATITIS ACUTE
  2. GEMFIBROZIL. [Suspect]
     Active Substance: GEMFIBROZIL
     Indication: PANCREATITIS ACUTE
  3. RINGER LACTATE                     /00467901/ [Suspect]
     Active Substance: SODIUM LACTATE
     Indication: HYPERTRIGLYCERIDAEMIA
     Dosage: UNK
     Route: 042
  4. RINGER LACTATE                     /00467901/ [Suspect]
     Active Substance: SODIUM LACTATE
     Indication: PANCREATITIS ACUTE
  5. HEPARIN [Suspect]
     Active Substance: HEPARIN SODIUM
     Indication: HYPERTRIGLYCERIDAEMIA
     Dosage: UNK
  6. HEPARIN [Suspect]
     Active Substance: HEPARIN SODIUM
     Indication: PANCREATITIS ACUTE
  7. DEXTROSE. [Suspect]
     Active Substance: DEXTROSE
     Indication: PANCREATITIS ACUTE
  8. INSULIN [Suspect]
     Active Substance: INSULIN NOS
     Indication: HYPERTRIGLYCERIDAEMIA
     Dosage: UNK
     Route: 065
  9. GEMFIBROZIL. [Suspect]
     Active Substance: GEMFIBROZIL
     Indication: HYPERTRIGLYCERIDAEMIA
     Dosage: 600 MILLIGRAM, BID
     Route: 065
  10. INSULIN [Suspect]
     Active Substance: INSULIN NOS
     Indication: PANCREATITIS ACUTE
  11. ATORVASTATIN [Suspect]
     Active Substance: ATORVASTATIN
     Indication: PANCREATITIS ACUTE
  12. FENOFIBRATE. [Suspect]
     Active Substance: FENOFIBRATE
     Indication: HYPERTRIGLYCERIDAEMIA
     Dosage: 40 MILLIGRAM, QD
     Route: 065
  13. ATORVASTATIN [Suspect]
     Active Substance: ATORVASTATIN
     Indication: HYPERTRIGLYCERIDAEMIA
     Dosage: 40 MILLIGRAM, QD
     Route: 065
  14. DEXTROSE. [Suspect]
     Active Substance: DEXTROSE
     Indication: HYPERTRIGLYCERIDAEMIA
     Dosage: UNK

REACTIONS (1)
  - Drug ineffective [Unknown]
